FAERS Safety Report 8836369 (Version 1)
Quarter: 2012Q4

REPORT INFORMATION
  Report Type: 
  Country: BG (occurrence: BG)
  Receive Date: 20121011
  Receipt Date: 20121011
  Transmission Date: 20130627
  Serious: Yes (Life-Threatening, Hospitalization)
  Sender: FDA-Public Use
  Company Number: BG-ASTRAZENECA-2012SE77302

PATIENT
  Age: 80 Year
  Sex: Female

DRUGS (5)
  1. VIMOVO [Suspect]
     Indication: OSTEOARTHRITIS
     Dosage: 500 mg/ 20 mg TWICE DAILY
     Route: 048
     Dates: start: 201209, end: 201209
  2. NEBIVOLOL [Concomitant]
     Indication: HYPERTENSION
     Route: 048
  3. METHYLDIGOXIN [Concomitant]
     Indication: HYPERTENSION
     Route: 048
  4. ENALAPRIL [Concomitant]
     Indication: HYPERTENSION
     Route: 048
  5. SINTROM [Concomitant]
     Indication: ARRHYTHMIA
     Dosage: 1 mg - 5 days a week and 2 mg 2 days a week
     Route: 048

REACTIONS (2)
  - Large intestinal haemorrhage [Recovered/Resolved]
  - Rectal haemorrhage [Recovered/Resolved]
